FAERS Safety Report 23574863 (Version 1)
Quarter: 2024Q1

REPORT INFORMATION
  Report Type: Spontaneous
  Country: US (occurrence: US)
  Receive Date: 20240228
  Receipt Date: 20240228
  Transmission Date: 20240409
  Serious: No
  Sender: FDA-Public Use
  Company Number: US-Mission Pharmacal Company-2153757

PATIENT
  Age: 12 Year
  Sex: Female

DRUGS (1)
  1. THIOLA EC [Suspect]
     Active Substance: TIOPRONIN
     Route: 048
     Dates: start: 20210701

REACTIONS (4)
  - Urine ketone body present [Unknown]
  - Drug ineffective [Unknown]
  - Proteinuria [Unknown]
  - Hypophosphataemia [Unknown]
